FAERS Safety Report 24641766 (Version 2)
Quarter: 2024Q4

REPORT INFORMATION
  Report Type: Spontaneous
  Country: TR (occurrence: TR)
  Receive Date: 20241120
  Receipt Date: 20241219
  Transmission Date: 20250115
  Serious: Yes (Death, Hospitalization)
  Sender: TEVA
  Company Number: TR-TEVA-VS-3265388

PATIENT
  Age: 15 Year
  Sex: Male

DRUGS (9)
  1. PREDNISOLONE [Suspect]
     Active Substance: PREDNISOLONE
     Indication: Immunosuppressant drug therapy
     Route: 065
  2. TACROLIMUS [Suspect]
     Active Substance: TACROLIMUS
     Indication: Immunosuppressant drug therapy
     Route: 065
  3. MYCOPHENOLATE MOFETIL [Suspect]
     Active Substance: MYCOPHENOLATE MOFETIL
     Indication: Immunosuppressant drug therapy
     Route: 065
  4. PIPERACILLIN SODIUM\TAZOBACTAM SODIUM [Concomitant]
     Active Substance: PIPERACILLIN SODIUM\TAZOBACTAM SODIUM
     Indication: Antibiotic prophylaxis
     Route: 065
  5. COTRIMOXAZOLE [Concomitant]
     Active Substance: SULFAMETHOXAZOLE\TRIMETHOPRIM
     Indication: Antibiotic prophylaxis
     Route: 065
  6. AMPHOTERICIN B [Suspect]
     Active Substance: AMPHOTERICIN B
     Indication: Disseminated cryptococcosis
     Dosage: LIPOSOMAL AMPHOTERICIN B
     Route: 042
  7. FLUCYTOSINE [Suspect]
     Active Substance: FLUCYTOSINE
     Indication: Disseminated cryptococcosis
     Dosage: 5-FLUCYTOSINE
     Route: 065
  8. FLUCONAZOLE [Suspect]
     Active Substance: FLUCONAZOLE
     Indication: Antifungal prophylaxis
     Route: 042
  9. FLUCONAZOLE [Suspect]
     Active Substance: FLUCONAZOLE
     Indication: Antifungal prophylaxis
     Route: 065

REACTIONS (10)
  - Disseminated cryptococcosis [Unknown]
  - Pneumonia [Fatal]
  - Pleural effusion [Unknown]
  - Atelectasis [Unknown]
  - Acute respiratory failure [Unknown]
  - Gastrointestinal haemorrhage [Fatal]
  - Respiratory distress [Unknown]
  - Pancreatitis [Fatal]
  - Drug ineffective [Fatal]
  - Shock [Fatal]
